FAERS Safety Report 7315140-7 (Version None)
Quarter: 2011Q1

REPORT INFORMATION
  Report Type: 
  Country: None (occurrence: None)
  Receive Date: 20110225
  Receipt Date: 20110214
  Transmission Date: 20110831
  Serious: Yes (Death, Hospitalization)
  Sender: FDA-Public Use
  Company Number: DE-ROCHE-695846

PATIENT
  Sex: Female
  Weight: 88 kg

DRUGS (4)
  1. PREDNISOLONE [Concomitant]
     Indication: RHEUMATOID ARTHRITIS
     Route: 048
     Dates: start: 20021101, end: 20091001
  2. TOCILIZUMAB [Suspect]
     Indication: RHEUMATOID ARTHRITIS
     Route: 042
     Dates: start: 20090507, end: 20090924
  3. ALLOPURINOL [Concomitant]
     Indication: HYPERURICAEMIA
     Route: 048
     Dates: start: 20020101
  4. CALCILAC [Concomitant]
     Indication: OSTEOPOROSIS
     Route: 048
     Dates: start: 20020101

REACTIONS (7)
  - MULTI-ORGAN FAILURE [None]
  - DIVERTICULITIS [None]
  - PERITONITIS [None]
  - ESCHERICHIA SEPSIS [None]
  - INTESTINAL PERFORATION [None]
  - PNEUMONIA ESCHERICHIA [None]
  - ABSCESS [None]
